FAERS Safety Report 5801528-X (Version None)
Quarter: 2008Q3

REPORT INFORMATION
  Report Type: 
  Country: None (occurrence: None)
  Receive Date: 20080707
  Receipt Date: 20080626
  Transmission Date: 20090109
  Serious: No
  Sender: FDA-Public Use
  Company Number: US-JNJFOC-20080501346

PATIENT
  Sex: Female
  Weight: 41.28 kg

DRUGS (15)
  1. DURAGESIC-100 [Suspect]
     Route: 062
  2. DURAGESIC-100 [Suspect]
     Route: 062
  3. DURAGESIC-100 [Suspect]
     Indication: PAIN
     Dosage: TWO 12.5 UG PATCHES
     Route: 062
  4. FENTANYL TRANSDERMAL SYSTEM [Suspect]
     Indication: PAIN
     Route: 062
  5. FERROUS SULFATE TAB [Concomitant]
  6. ZANTAC [Concomitant]
     Route: 048
  7. MULTI-VITAMIN [Concomitant]
     Indication: MEDICAL DIET
     Route: 048
  8. ATENOLOL [Concomitant]
  9. POTASSIUM CHLORIDE [Concomitant]
  10. PREMARIN [Concomitant]
  11. MIRALAX [Concomitant]
     Route: 048
  12. NAMENDA [Concomitant]
     Route: 048
  13. PRILOSEC [Concomitant]
     Route: 048
  14. LASIX [Concomitant]
  15. HYDROCODONE [Concomitant]
     Indication: PAIN
     Dosage: 5/500. 1/2 TO 1G 4 TIMES

REACTIONS (3)
  - INCORRECT DRUG ADMINISTRATION DURATION [None]
  - OVERDOSE [None]
  - THERAPEUTIC RESPONSE DECREASED [None]
